FAERS Safety Report 13588833 (Version 1)
Quarter: 2017Q2

REPORT INFORMATION
  Report Type: Report from Study
  Country: KR (occurrence: KR)
  Receive Date: 20170529
  Receipt Date: 20170529
  Transmission Date: 20170830
  Serious: Yes (Other)
  Sender: FDA-Public Use
  Company Number: KR-ROCHE-1937459

PATIENT

DRUGS (1)
  1. CAPECITABINE. [Suspect]
     Active Substance: CAPECITABINE
     Indication: RECTAL CANCER
     Route: 065

REACTIONS (5)
  - Stoma complication [Unknown]
  - Anastomotic leak [Unknown]
  - Anastomotic fistula [Unknown]
  - Postoperative abscess [Unknown]
  - Anastomotic stenosis [Unknown]
